FAERS Safety Report 8153714-4 (Version None)
Quarter: 2012Q1

REPORT INFORMATION
  Report Type: 
  Country: None (occurrence: None)
  Receive Date: 20120221
  Receipt Date: 20120209
  Transmission Date: 20120608
  Serious: Yes (Other)
  Sender: FDA-Public Use
  Company Number: JP-PFIZER INC-2012040934

PATIENT
  Age: 35 Year
  Sex: Female

DRUGS (1)
  1. ZOSYN [Suspect]
     Indication: FEBRILE NEUTROPENIA
     Dosage: 4.5 G, 3X/DAY
     Route: 041

REACTIONS (1)
  - TUBULOINTERSTITIAL NEPHRITIS [None]
